FAERS Safety Report 6307385-X (Version None)
Quarter: 2009Q3

REPORT INFORMATION
  Report Type: 
  Country: None (occurrence: None)
  Receive Date: 20090813
  Receipt Date: 20090805
  Transmission Date: 20100115
  Serious: Yes (Hospitalization)
  Sender: FDA-Public Use
  Company Number: FR-AVENTIS-200911711EU

PATIENT
  Age: 71 Year
  Sex: Male

DRUGS (5)
  1. FLUDEX                             /00340101/ [Suspect]
     Route: 048
  2. COVERSYL                           /00790701/ [Suspect]
     Route: 048
  3. VASTAREL [Suspect]
     Route: 048
  4. DETENSIEL                          /00802601/ [Suspect]
     Route: 048
  5. THERALENE [Suspect]
     Route: 048

REACTIONS (4)
  - DRUG INTERACTION [None]
  - FALL [None]
  - HYPOKALAEMIA [None]
  - RHABDOMYOLYSIS [None]
